FAERS Safety Report 8488730-6 (Version None)
Quarter: 2012Q3

REPORT INFORMATION
  Report Type: 
  Country: None (occurrence: None)
  Receive Date: 20120705
  Receipt Date: 20120619
  Transmission Date: 20120928
  Serious: Yes (Other)
  Sender: FDA-Public Use
  Company Number: AU-BAYER-2012-060129

PATIENT
  Age: 51 Year
  Sex: Female
  Weight: 74.5 kg

DRUGS (4)
  1. MAXOLON [Concomitant]
     Dosage: 10 MG, UNK
     Route: 042
     Dates: start: 20120612, end: 20120612
  2. BUSCOPAN [Concomitant]
     Dosage: 20 MG, UNK
     Dates: start: 20120612, end: 20120612
  3. ULTRAVIST 150 [Suspect]
     Indication: COMPUTERISED TOMOGRAM ABDOMEN
     Dosage: DAILY DOSE 95 ML
     Route: 042
     Dates: start: 20120612, end: 20120612
  4. MORPHINE [Concomitant]
     Dosage: 2 MG, UNK
     Route: 042
     Dates: start: 20120612, end: 20120612

REACTIONS (10)
  - UPPER-AIRWAY COUGH SYNDROME [None]
  - THROAT IRRITATION [None]
  - TREMOR [None]
  - NAUSEA [None]
  - COUGH [None]
  - EYELID PTOSIS [None]
  - THROAT TIGHTNESS [None]
  - MALAISE [None]
  - SNEEZING [None]
  - EYE PRURITUS [None]
